FAERS Safety Report 9875101 (Version 1)
Quarter: 2014Q1

REPORT INFORMATION
  Report Type: Spontaneous
  Country: US (occurrence: None)
  Receive Date: 20140205
  Receipt Date: 20140205
  Transmission Date: 20141002
  Serious: No
  Sender: FDA-Public Use
  Company Number: None

PATIENT
  Age: 24 Year
  Sex: Male
  Weight: 77.11 kg

DRUGS (2)
  1. MIRVASO [Suspect]
     Indication: ROSACEA
     Dosage: 30G?TWICE DAILY?APPLIED TO A SURGACE, USUALLY THE SKIN
     Dates: start: 20140131, end: 20140203
  2. MIRVASO [Suspect]
     Indication: ERYTHEMA
     Dosage: 30G?TWICE DAILY?APPLIED TO A SURGACE, USUALLY THE SKIN
     Dates: start: 20140131, end: 20140203

REACTIONS (2)
  - Erythema [None]
  - Condition aggravated [None]
